FAERS Safety Report 4849985-X (Version None)
Quarter: 2005Q4

REPORT INFORMATION
  Report Type: 
  Country: None (occurrence: None)
  Receive Date: 20051123
  Receipt Date: 20050204
  Transmission Date: 20060501
  Serious: Yes (Other)
  Sender: FDA-Public Use
  Company Number: 2005019371

PATIENT
  Age: 50 Year
  Sex: Male

DRUGS (5)
  1. LIPITOR [Suspect]
     Indication: HYPERCHOLESTEROLAEMIA
     Dates: end: 20041101
  2. ESCITALOPRAM (ESCITALOPRAM) [Suspect]
     Indication: DEPRESSION
     Dosage: 20 MG,ORAL
     Route: 048
     Dates: start: 20031101, end: 20041101
  3. TRAMADOL HCL [Concomitant]
  4. CLONAZEPAM [Concomitant]
  5. LORAZEPAM [Concomitant]

REACTIONS (5)
  - ANXIETY [None]
  - BACK PAIN [None]
  - DEPRESSION [None]
  - HAEMORRHOIDS [None]
  - HEPATITIS [None]
